FAERS Safety Report 23874854 (Version 2)
Quarter: 2024Q3

REPORT INFORMATION
  Report Type: Spontaneous
  Country: US (occurrence: US)
  Receive Date: 20240520
  Receipt Date: 20240819
  Transmission Date: 20241016
  Serious: No
  Sender: BRISTOL MYERS SQUIBB
  Company Number: US-BRISTOL-MYERS SQUIBB COMPANY-2024-077856

PATIENT
  Age: 74 Year
  Sex: Female

DRUGS (2)
  1. ORENCIA [Suspect]
     Active Substance: ABATACEPT
     Indication: Rheumatoid arthritis
     Dosage: DOSE : 750MG; FREQUENCY : EVERY FOUR WEEKS; STRENGTH : 250MG VIAL.
     Route: 042
  2. ORENCIA [Suspect]
     Active Substance: ABATACEPT
     Dosage: DOSE : 1000MG; FREQUENCY : EVERY FOUR WEEKS;
     Route: 042

REACTIONS (1)
  - Weight increased [Unknown]
